FAERS Safety Report 11148849 (Version 1)
Quarter: 2015Q2

REPORT INFORMATION
  Report Type: Spontaneous
  Country: AU (occurrence: AU)
  Receive Date: 20150529
  Receipt Date: 20150529
  Transmission Date: 20150821
  Serious: Yes (Death, Other)
  Sender: FDA-Public Use
  Company Number: AU-CIPLA LTD.-2015AU04173

PATIENT

DRUGS (2)
  1. GEMCITABINE [Suspect]
     Active Substance: GEMCITABINE\GEMCITABINE HYDROCHLORIDE
     Indication: BILE DUCT CANCER
     Dosage: 1000 MG/M2, ON DAYS 1 AND 8 OF 21-DAY CYCLE
     Route: 065
  2. CISPLATIN. [Suspect]
     Active Substance: CISPLATIN
     Indication: BILE DUCT CANCER
     Dosage: 20 MG/M2, ON DAYS 1 AND 8 OF 21-DAY CYCLE
     Route: 065

REACTIONS (3)
  - Gastrointestinal haemorrhage [Fatal]
  - Haematemesis [Fatal]
  - Thrombocytopenia [Unknown]
